FAERS Safety Report 7739942-8 (Version None)
Quarter: 2011Q3

REPORT INFORMATION
  Report Type: 
  Country: None (occurrence: None)
  Receive Date: 20110909
  Receipt Date: 20110907
  Transmission Date: 20111222
  Serious: Yes (Death, Hospitalization, Other)
  Sender: FDA-Public Use
  Company Number: PHHY2011US15141

PATIENT
  Sex: Male

DRUGS (17)
  1. LEXAPRO [Concomitant]
  2. ADDERALL 5 [Concomitant]
  3. GILENYA [Suspect]
     Dosage: 0.5 MG, QD
     Route: 048
     Dates: start: 20110301
  4. BACLOFEN [Concomitant]
  5. ALLEGRA [Concomitant]
  6. LASIX [Concomitant]
  7. DETROL [Concomitant]
  8. ZANAFLEX [Concomitant]
  9. NAMENDA [Concomitant]
  10. NOVOLIN 70/30 [Concomitant]
  11. ARICEPT [Concomitant]
  12. MYSOLINE [Concomitant]
  13. ROBITUSSIN ^ROBINS^ [Concomitant]
  14. FOCALIN [Concomitant]
  15. GILENYA [Suspect]
     Indication: MULTIPLE SCLEROSIS
     Dosage: 0.5 MG, QD
     Route: 048
     Dates: start: 20101122, end: 20110215
  16. ENALAPRIL MALEATE [Concomitant]
     Indication: HYPERTENSION
     Dosage: 10 MG, UNK
     Dates: start: 20080211
  17. SYSTANE (PROPYLENE GLYCOL/MACROGOL) [Concomitant]

REACTIONS (22)
  - DYSPNOEA [None]
  - SKIN DISORDER [None]
  - BODY TEMPERATURE INCREASED [None]
  - UNRESPONSIVE TO STIMULI [None]
  - PULSE PRESSURE DECREASED [None]
  - BLOOD PRESSURE INCREASED [None]
  - DYSPHAGIA [None]
  - CELLULITIS [None]
  - LETHARGY [None]
  - HYPERHIDROSIS [None]
  - MOVEMENT DISORDER [None]
  - CONVULSION [None]
  - HEMIPARESIS [None]
  - PAIN [None]
  - PNEUMONIA [None]
  - SKIN WARM [None]
  - RESPIRATORY DISTRESS [None]
  - CYANOSIS [None]
  - RALES [None]
  - HEART RATE INCREASED [None]
  - SOMNOLENCE [None]
  - COLD SWEAT [None]
